FAERS Safety Report 13897220 (Version 1)
Quarter: 2017Q3

REPORT INFORMATION
  Report Type: Spontaneous
  Country: CN (occurrence: CN)
  Receive Date: 20170823
  Receipt Date: 20170823
  Transmission Date: 20171127
  Serious: Yes (Death)
  Sender: FDA-Public Use
  Company Number: CN-GLAXOSMITHKLINE-CN2017GSK129791

PATIENT

DRUGS (2)
  1. VENTOLIN [Suspect]
     Active Substance: ALBUTEROL SULFATE
     Indication: LUNG ABSCESS
     Dosage: 20 ML, UNK
     Route: 055
     Dates: start: 20170821
  2. IMIPENEM [Suspect]
     Active Substance: IMIPENEM
     Indication: LUNG ABSCESS
     Dosage: UNK
     Dates: start: 20170821

REACTIONS (3)
  - Off label use [Unknown]
  - Product use in unapproved indication [Unknown]
  - Cardiac disorder [Fatal]

NARRATIVE: CASE EVENT DATE: 20170821
